FAERS Safety Report 7637524-X (Version None)
Quarter: 2011Q3

REPORT INFORMATION
  Report Type: 
  Country: None (occurrence: None)
  Receive Date: 20110726
  Receipt Date: 20110721
  Transmission Date: 20111222
  Serious: Yes (Death, Other)
  Sender: FDA-Public Use
  Company Number: PHEH2009US16957

PATIENT
  Sex: Female

DRUGS (1)
  1. ZOMETA [Suspect]

REACTIONS (11)
  - PAIN [None]
  - ANHEDONIA [None]
  - ABDOMINAL DISTENSION [None]
  - HYPERTHERMIA [None]
  - PNEUMONIA [None]
  - LUNG NEOPLASM MALIGNANT [None]
  - GENERAL PHYSICAL HEALTH DETERIORATION [None]
  - DEATH [None]
  - OSTEONECROSIS OF JAW [None]
  - ANXIETY [None]
  - ABDOMINAL PAIN [None]
